FAERS Safety Report 9644507 (Version 2)
Quarter: 2013Q4

REPORT INFORMATION
  Report Type: Report from Study
  Country: NL (occurrence: NL)
  Receive Date: 20131025
  Receipt Date: 20131031
  Transmission Date: 20140711
  Serious: Yes (Hospitalization)
  Sender: FDA-Public Use
  Company Number: NL-BRISTOL-MYERS SQUIBB COMPANY-19582436

PATIENT
  Age: 63 Year
  Sex: Female

DRUGS (29)
  1. PACLITAXEL [Suspect]
     Indication: HER-2 POSITIVE BREAST CANCER
     Dosage: RECENT INF WAS ON 25/JAN/2013
     Route: 042
     Dates: start: 20121123, end: 20130125
  2. PERTUZUMAB [Suspect]
     Indication: HER-2 POSITIVE BREAST CANCER
     Dosage: 5APR13(LOADING DOSE)?420MG 1 IN 3WK?23NV12-UNK?14DC12-5APR13?INTER ON 5JAN13 RESTARTED ON 27SP13
     Route: 042
     Dates: start: 20121123
  3. TRASTUZUMAB [Suspect]
     Indication: HER-2 POSITIVE BREAST CANCER
     Dosage: LOADING DOSE:5APR13?350MG 1 IN 3WK?23NV12-UNK?14DC12-5AP13?27SP13-UNK?RESTA 27SP13
     Route: 042
     Dates: start: 20121123
  4. ASCAL [Concomitant]
     Dates: start: 19970424
  5. OXAZEPAM [Concomitant]
     Dates: start: 20130113
  6. METFORMIN [Concomitant]
     Dates: start: 20110913
  7. SIMVASTATINE [Concomitant]
  8. CHOLECALCIFEROL [Concomitant]
     Dosage: 1DF=50000UNITS 5FB13-UNK?400IE ALSO TKN 5FB13-11FB13
  9. APD [Concomitant]
     Dates: start: 20130404, end: 20130404
  10. DICLOFENAC [Concomitant]
  11. ESOMEPRAZOLE [Concomitant]
  12. LOPERAMIDE [Concomitant]
     Dates: start: 20121205
  13. FLIXOTIDE [Concomitant]
  14. ATROVENT [Concomitant]
     Dates: start: 201210
  15. OXAZEPAM [Concomitant]
     Dates: start: 20130113
  16. SALBUTAMOL [Concomitant]
     Dates: start: 20130113
  17. MAGNESIUM HYDROXIDE [Concomitant]
     Dates: start: 20130121, end: 20130211
  18. LASIX [Concomitant]
     Dates: start: 20130115, end: 20130115
  19. CLINDAMYCIN [Concomitant]
     Dates: start: 20130129, end: 20130211
  20. CIPRO [Concomitant]
     Dosage: 29JAN13-11FB13?7MAR13-17MAR13
     Dates: start: 20130129, end: 20130317
  21. AUGMENTIN [Concomitant]
     Dates: start: 20130122, end: 20130804
  22. OMEPRAZOLE [Concomitant]
     Dates: start: 20130203, end: 20130208
  23. SODIUM CHLORIDE [Concomitant]
     Route: 042
     Dates: start: 20130131, end: 20130131
  24. PREDNISONE [Concomitant]
     Dates: start: 20130115, end: 20130214
  25. CEFUROXIME [Concomitant]
     Dates: start: 20130113, end: 20130218
  26. TOBRAMYCIN [Concomitant]
     Dates: start: 20130113, end: 20130117
  27. NOVORAPID [Concomitant]
     Dates: start: 20130114, end: 20130122
  28. ULCOGANT [Concomitant]
     Dates: start: 20130206, end: 20130211
  29. FLAGYL [Concomitant]
     Dates: start: 20130614, end: 20130624

REACTIONS (1)
  - Cellulitis [Recovered/Resolved]
